FAERS Safety Report 12215408 (Version 2)
Quarter: 2016Q2

REPORT INFORMATION
  Report Type: Report from Study
  Country: US (occurrence: US)
  Receive Date: 20160328
  Receipt Date: 20160419
  Transmission Date: 20160815
  Serious: Yes (Hospitalization)
  Sender: FDA-Public Use
  Company Number: US-ABBVIE-16K-163-1591700-00

PATIENT
  Age: 52 Year
  Sex: Female
  Weight: 65.38 kg

DRUGS (4)
  1. TUMS [Concomitant]
     Active Substance: CALCIUM CARBONATE
     Indication: PRODUCT USED FOR UNKNOWN INDICATION
  2. HUMIRA [Suspect]
     Active Substance: ADALIMUMAB
     Indication: CROHN^S DISEASE
     Route: 058
     Dates: start: 2012, end: 201501
  3. PRILOSEC [Concomitant]
     Active Substance: OMEPRAZOLE MAGNESIUM
     Indication: PRODUCT USED FOR UNKNOWN INDICATION
  4. HUMIRA [Suspect]
     Active Substance: ADALIMUMAB
     Route: 058
     Dates: start: 201508, end: 201603

REACTIONS (6)
  - Cardiac failure congestive [Recovering/Resolving]
  - Asthenia [Unknown]
  - Loss of consciousness [Unknown]
  - Chest discomfort [Recovering/Resolving]
  - Blood pressure decreased [Recovering/Resolving]
  - Dizziness [Recovering/Resolving]

NARRATIVE: CASE EVENT DATE: 201602
